FAERS Safety Report 5700469-6 (Version None)
Quarter: 2008Q2

REPORT INFORMATION
  Report Type: 
  Country: None (occurrence: None)
  Receive Date: 20080410
  Receipt Date: 20080401
  Transmission Date: 20081010
  Serious: Yes (Hospitalization)
  Sender: FDA-Public Use
  Company Number: US-JNJFOC-20080400770

PATIENT
  Sex: Female
  Weight: 52.16 kg

DRUGS (3)
  1. FENTANYL TRANSDERMAL SYSTEM [Suspect]
     Indication: PAIN IN EXTREMITY
     Route: 062
  2. PREDNISONE [Suspect]
     Indication: INFLAMMATION
     Route: 048
  3. PERCOCET [Concomitant]
     Indication: PAIN
     Dosage: 5 / 325
     Route: 048

REACTIONS (4)
  - DYSPHAGIA [None]
  - NERVOUS SYSTEM DISORDER [None]
  - WEIGHT INCREASED [None]
  - WRONG TECHNIQUE IN DRUG USAGE PROCESS [None]
